FAERS Safety Report 7989060-9 (Version None)
Quarter: 2011Q4

REPORT INFORMATION
  Report Type: 
  Country: None (occurrence: None)
  Receive Date: 20111219
  Receipt Date: 20111208
  Transmission Date: 20120403
  Serious: Yes (Hospitalization)
  Sender: FDA-Public Use
  Company Number: US-BAYER-2011-100243

PATIENT
  Age: 37 Year
  Sex: Female
  Weight: 65.76 kg

DRUGS (9)
  1. DROSPIRENONE AND ETHINYL ESTRADIOL [Suspect]
     Indication: CONTRACEPTION
     Dosage: UNK
     Route: 048
     Dates: start: 20080701, end: 20091201
  2. YASMIN [Suspect]
     Indication: CONTRACEPTION
     Dosage: UNK
     Route: 048
     Dates: start: 20070201, end: 20080701
  3. CIPROFLOXACIN [Concomitant]
     Dosage: 500 MG, BID
     Route: 048
     Dates: start: 20080620
  4. OMEPRAZOLE [Concomitant]
     Dosage: UNK
     Dates: start: 20080828
  5. ACETAMINOPHEN [Concomitant]
     Dosage: UNK UNK, PRN
  6. YAZ [Suspect]
     Indication: CONTRACEPTION
  7. IBUPROFEN [Concomitant]
     Dosage: 600 MG, QID
     Route: 048
     Dates: start: 20080620
  8. DARVOCET, NAPSYLATE 650MG +#8211; 100MG [Concomitant]
     Dosage: UNK UNK, Q4HR
     Route: 048
  9. LOTRISONE [Concomitant]
     Dosage: UNK %, UNK

REACTIONS (5)
  - CHOLELITHIASIS [None]
  - PAIN [None]
  - ABDOMINAL PAIN [None]
  - CHOLECYSTITIS [None]
  - INJURY [None]
